FAERS Safety Report 12062925 (Version 1)
Quarter: 2016Q1

REPORT INFORMATION
  Report Type: Spontaneous
  Country: US (occurrence: US)
  Receive Date: 20160210
  Receipt Date: 20160210
  Transmission Date: 20160526
  Serious: No
  Sender: FDA-Public Use
  Company Number: US-ALLERGAN-1505917US

PATIENT
  Age: 61 Year
  Sex: Female

DRUGS (3)
  1. BOTOX [Suspect]
     Active Substance: ONABOTULINUMTOXINA
     Indication: MIGRAINE
     Dosage: UNK, SINGLE
     Dates: start: 20150216, end: 20150216
  2. TORADOL [Concomitant]
     Active Substance: KETOROLAC TROMETHAMINE
     Indication: MIGRAINE
     Dosage: UNK
  3. BUTALBITAL [Concomitant]
     Active Substance: BUTALBITAL
     Dosage: UNK

REACTIONS (8)
  - Eye swelling [Not Recovered/Not Resolved]
  - Urticaria [Recovering/Resolving]
  - Headache [Unknown]
  - Hypersensitivity [Unknown]
  - Tongue oedema [Unknown]
  - Chest discomfort [Unknown]
  - Swelling face [Unknown]
  - Neck pain [Unknown]

NARRATIVE: CASE EVENT DATE: 20150217
